FAERS Safety Report 8486794-7 (Version None)
Quarter: 2012Q3

REPORT INFORMATION
  Report Type: 
  Country: None (occurrence: None)
  Receive Date: 20120704
  Receipt Date: 20120625
  Transmission Date: 20120928
  Serious: No
  Sender: FDA-Public Use
  Company Number: US-BIOGENIDEC-2012BI022523

PATIENT
  Sex: Female

DRUGS (2)
  1. AVONEX [Suspect]
     Route: 030
     Dates: start: 20090929, end: 20120529
  2. AVONEX [Suspect]
     Indication: MULTIPLE SCLEROSIS
     Route: 030
     Dates: start: 20010625, end: 20060101

REACTIONS (7)
  - GAIT DISTURBANCE [None]
  - HYPOAESTHESIA [None]
  - INJECTION SITE ERYTHEMA [None]
  - INJECTION SITE SWELLING [None]
  - INJECTION SITE REACTION [None]
  - INJECTION SITE MASS [None]
  - FALL [None]
